FAERS Safety Report 7390973-X (Version None)
Quarter: 2011Q2

REPORT INFORMATION
  Report Type: 
  Country: None (occurrence: None)
  Receive Date: 20110404
  Receipt Date: 20110330
  Transmission Date: 20111010
  Serious: No
  Sender: FDA-Public Use
  Company Number: US-PFIZER INC-2011071213

PATIENT
  Sex: Male
  Weight: 68.027 kg

DRUGS (7)
  1. VASOTEC [Concomitant]
     Dosage: 20 MG, 2X/DAY
  2. OMEPRAZOLE [Concomitant]
     Indication: HYPERCHLORHYDRIA
     Dosage: 40 MG, DAILY
  3. TAMSULOSIN [Concomitant]
     Dosage: UNK, DAILY
  4. TEMAZEPAM [Concomitant]
     Indication: SLEEP DISORDER
     Dosage: 30 MG, UNK
  5. INDAPAMIDE [Concomitant]
     Indication: HYPERTENSION
     Dosage: 2.5 MG, UNK
  6. NORVASC [Concomitant]
     Dosage: 10 MG, 2X/DAY
  7. TOVIAZ [Suspect]
     Indication: HYPERTONIC BLADDER
     Dosage: 8 MG, 1X/DAY
     Route: 048
     Dates: start: 20100101

REACTIONS (1)
  - DRUG INEFFECTIVE [None]
